FAERS Safety Report 20721139 (Version 3)
Quarter: 2022Q3

REPORT INFORMATION
  Report Type: Spontaneous
  Country: CA (occurrence: CA)
  Receive Date: 20220418
  Receipt Date: 20220907
  Transmission Date: 20221027
  Serious: Yes (Hospitalization, Other)
  Sender: FDA-Public Use
  Company Number: CA-JNJFOC-20220426649

PATIENT
  Age: 65 Year
  Sex: Male
  Weight: 79 kg

DRUGS (3)
  1. STELARA [Suspect]
     Active Substance: USTEKINUMAB
     Indication: Crohn^s disease
     Route: 058
  2. VAXZEVRIA [Concomitant]
     Active Substance: AZD-1222
     Indication: COVID-19 prophylaxis
     Dosage: 10 DOSES OF 0.5 ML.
     Route: 030
  3. VAXZEVRIA [Concomitant]
     Active Substance: AZD-1222
     Indication: COVID-19 immunisation

REACTIONS (5)
  - Salmonellosis [Unknown]
  - COVID-19 [Unknown]
  - Drug ineffective [Unknown]
  - Off label use [Unknown]
  - Product use issue [Unknown]
